FAERS Safety Report 15825643 (Version 1)
Quarter: 2019Q1

REPORT INFORMATION
  Report Type: Spontaneous
  Country: IT (occurrence: IT)
  Receive Date: 20190115
  Receipt Date: 20190115
  Transmission Date: 20190417
  Serious: Yes (Hospitalization)
  Sender: FDA-Public Use
  Company Number: IT-BAYER-2019-008742

PATIENT
  Age: 90 Year
  Sex: Female

DRUGS (1)
  1. CARDIOASPIRIN 100 MG [Suspect]
     Active Substance: ASPIRIN
     Dosage: UNK
     Dates: start: 201805

REACTIONS (2)
  - Shock haemorrhagic [None]
  - Acute coronary syndrome [None]

NARRATIVE: CASE EVENT DATE: 20180508
